FAERS Safety Report 4630626-1 (Version None)
Quarter: 2005Q2

REPORT INFORMATION
  Report Type: 
  Country: None (occurrence: None)
  Receive Date: 20050408
  Receipt Date: 20050321
  Transmission Date: 20051028
  Serious: Yes (Hospitalization)
  Sender: FDA-Public Use
  Company Number: US-BRISTOL-MYERS SQUIBB COMPANY-12905774

PATIENT
  Age: 79 Year
  Sex: Male

DRUGS (5)
  1. CARBOPLATIN [Suspect]
     Indication: NON-SMALL CELL LUNG CANCER
     Dosage: 1ST CYCLE.
     Route: 042
     Dates: start: 20050121, end: 20050121
  2. TAXOTERE [Suspect]
     Indication: NON-SMALL CELL LUNG CANCER
     Dosage: 1ST CYCLE.
     Route: 042
     Dates: start: 20050121, end: 20050121
  3. LOVASTATIN [Concomitant]
  4. PERCOCET [Concomitant]
  5. MEGACE [Concomitant]

REACTIONS (15)
  - ANOREXIA [None]
  - BLOOD CALCIUM DECREASED [None]
  - BLOOD GLUCOSE INCREASED [None]
  - BLOOD UREA INCREASED [None]
  - CANDIDIASIS [None]
  - CONSTIPATION [None]
  - DEHYDRATION [None]
  - ELECTROCARDIOGRAM QRS COMPLEX ABNORMAL [None]
  - FATIGUE [None]
  - FEBRILE NEUTROPENIA [None]
  - PAIN [None]
  - PNEUMONIA [None]
  - SINUS TACHYCARDIA [None]
  - WEIGHT DECREASED [None]
  - WHITE BLOOD CELL COUNT DECREASED [None]
